FAERS Safety Report 6829711-5 (Version None)
Quarter: 2010Q3

REPORT INFORMATION
  Report Type: 
  Country: None (occurrence: None)
  Receive Date: 20100706
  Receipt Date: 20100622
  Transmission Date: 20110219
  Serious: Yes (Other)
  Sender: FDA-Public Use
  Company Number: 2010SCPR001590

PATIENT

DRUGS (1)
  1. HYDROXYUREA [Suspect]
     Indication: PLATELET DISORDER
     Dosage: 1500 MG, QD
     Dates: start: 20100301

REACTIONS (3)
  - PLATELET COUNT ABNORMAL [None]
  - PRODUCT SIZE ISSUE [None]
  - WHITE BLOOD CELL COUNT ABNORMAL [None]
